FAERS Safety Report 18604865 (Version 1)
Quarter: 2020Q4

REPORT INFORMATION
  Report Type: Spontaneous
  Country: CA (occurrence: CA)
  Receive Date: 20201211
  Receipt Date: 20201211
  Transmission Date: 20210114
  Serious: Yes (Other)
  Sender: FDA-Public Use
  Company Number: CA-009507513-2012CAN005042

PATIENT
  Age: 80 Year
  Sex: Male

DRUGS (1)
  1. DESLORATADINE. [Suspect]
     Active Substance: DESLORATADINE
     Indication: RHINORRHOEA
     Dosage: 10 MG, QD
     Dates: start: 20201205

REACTIONS (1)
  - Glaucoma [Not Recovered/Not Resolved]
